FAERS Safety Report 8428980-8 (Version None)
Quarter: 2012Q2

REPORT INFORMATION
  Report Type: 
  Country: None (occurrence: None)
  Receive Date: 20120612
  Receipt Date: 20120530
  Transmission Date: 20120825
  Serious: Yes (Hospitalization)
  Sender: FDA-Public Use
  Company Number: US-ELI_LILLY_AND_COMPANY-US201206000134

PATIENT
  Sex: Male

DRUGS (13)
  1. SEROQUEL [Concomitant]
     Dosage: UNK
  2. CYMBALTA [Suspect]
  3. METFORMIN HCL [Concomitant]
     Dosage: UNK
  4. FORTEO [Suspect]
     Dosage: 20 UG, QD
     Dates: start: 20110501, end: 20120501
  5. COREG [Concomitant]
     Dosage: UNK
  6. FORTEO [Suspect]
     Indication: OSTEOPOROSIS
     Dosage: 20 UG, QD
     Dates: start: 20110501, end: 20120501
  7. PRADAXA [Concomitant]
  8. SYNTHROID [Concomitant]
     Dosage: UNK
  9. FOLIC ACID [Concomitant]
     Dosage: UNK
  10. LIPITOR [Concomitant]
     Dosage: UNK
  11. ASPIRIN [Concomitant]
     Dosage: UNK
  12. DIGOXIN [Concomitant]
     Dosage: UNK
  13. RAMIPRIL [Concomitant]
     Dosage: UNK

REACTIONS (6)
  - LOSS OF CONSCIOUSNESS [None]
  - DYSPNOEA [None]
  - SYNCOPE [None]
  - PNEUMONIA [None]
  - HAEMORRHAGE [None]
  - CARDIAC PACEMAKER INSERTION [None]
